FAERS Safety Report 9672655 (Version 2)
Quarter: 2014Q1

REPORT INFORMATION
  Report Type: Spontaneous
  Country: US (occurrence: US)
  Receive Date: 20131106
  Receipt Date: 20140102
  Transmission Date: 20141002
  Serious: No
  Sender: FDA-Public Use
  Company Number: US-AMGEN-USASP2013067258

PATIENT
  Age: 64 Year
  Sex: Female
  Weight: 108.84 kg

DRUGS (18)
  1. ENBREL [Suspect]
     Indication: PSORIASIS
     Dosage: 50 MG, 2 TIMES/WK
     Route: 058
     Dates: start: 201306
  2. ATENOLOL [Concomitant]
     Dosage: 25 MG, UNK
  3. SIMVASTATIN [Concomitant]
     Dosage: 10 MG, UNK
  4. FOLIC ACID [Concomitant]
     Dosage: UNK
  5. WELCHOL [Concomitant]
     Dosage: 625 MG, UNK
  6. CYCLOBENZAPRINE [Concomitant]
     Dosage: 7.5 MG, UNK
  7. SPIRONOLACTON [Concomitant]
     Dosage: 25 MG, UNK
  8. GLUMETZA [Concomitant]
     Dosage: 500 MG, UNK
  9. FLUOXETINE [Concomitant]
     Dosage: 10 MG, UNK
  10. ESTRADIOL [Concomitant]
     Dosage: 0.025 MG, UNK
  11. LEVOTHYROXIN [Concomitant]
     Dosage: 100 MUG, UNK
  12. BUSPIRONE [Concomitant]
     Dosage: 10 MG, UNK
  13. POTASSIUM [Concomitant]
     Dosage: 95 MG, UNK
  14. BENADRYL                           /00000402/ [Concomitant]
     Dosage: 25 MG, UNK
  15. LEVEMIR [Concomitant]
     Dosage: UNK
  16. RANITIDINE [Concomitant]
     Dosage: 75 MG, UNK
  17. ZOLPIDEM [Concomitant]
     Dosage: 5 MG, UNK
  18. DOXYCYCLIN                         /00055702/ [Concomitant]
     Dosage: 50 MG, UNK

REACTIONS (1)
  - Drug effect incomplete [Unknown]
